FAERS Safety Report 5060562-0 (Version None)
Quarter: 2006Q2

REPORT INFORMATION
  Report Type: 
  Country: None (occurrence: None)
  Receive Date: 20060630
  Receipt Date: 20060425
  Transmission Date: 20061013
  Serious: Yes (Hospitalization)
  Sender: FDA-Public Use
  Company Number: VISP-PR-0604S-0241

PATIENT
  Age: 42 Year
  Sex: Female

DRUGS (2)
  1. VISIPAQUE [Suspect]
     Indication: DRUG USE FOR UNKNOWN INDICATION
     Dosage: 100 ML, SINGLE DOSE, I.V.
     Route: 042
     Dates: start: 20060425, end: 20060425
  2. METHYLPREDNISOLONE SODIUM SUCCINATE (SOLU-MEDROL) [Concomitant]

REACTIONS (1)
  - ANAPHYLACTOID SHOCK [None]
